FAERS Safety Report 4691521-5 (Version None)
Quarter: 2005Q2

REPORT INFORMATION
  Report Type: 
  Country: None (occurrence: None)
  Receive Date: 20050608
  Receipt Date: 20041215
  Transmission Date: 20051028
  Serious: Yes (Other)
  Sender: FDA-Public Use
  Company Number: 389485

PATIENT
  Sex: Male

DRUGS (1)
  1. ACCUTANE [Suspect]
     Indication: DRUG USE FOR UNKNOWN INDICATION
     Dosage: 10 MG 2 PER DAY ORAL
     Route: 048
     Dates: start: 20040815, end: 20040915

REACTIONS (3)
  - INTRACRANIAL PRESSURE INCREASED [None]
  - OPTIC NEUROPATHY [None]
  - VISUAL DISTURBANCE [None]
